FAERS Safety Report 12073969 (Version 2)
Quarter: 2016Q1

REPORT INFORMATION
  Report Type: Spontaneous
  Country: IL (occurrence: IL)
  Receive Date: 20160212
  Receipt Date: 20160215
  Transmission Date: 20160526
  Serious: Yes (Other)
  Sender: FDA-Public Use
  Company Number: IL-BAYER-2016-024486

PATIENT
  Age: 52 Year
  Sex: Female

DRUGS (1)
  1. YASMIN [Suspect]
     Active Substance: DROSPIRENONE\ETHINYL ESTRADIOL
     Indication: INFERTILITY FEMALE
     Route: 048

REACTIONS (3)
  - Rectal haemorrhage [None]
  - Off label use [None]
  - Deep vein thrombosis [None]

NARRATIVE: CASE EVENT DATE: 201601
